FAERS Safety Report 19719810 (Version 1)
Quarter: 2021Q3

REPORT INFORMATION
  Report Type: Spontaneous
  Country: US (occurrence: US)
  Receive Date: 20210819
  Receipt Date: 20210819
  Transmission Date: 20211014
  Serious: Yes (Hospitalization, Other)
  Sender: FDA-Public Use
  Company Number: US-LUPIN PHARMACEUTICALS INC.-2021-15010

PATIENT
  Age: 17 Year
  Sex: Female

DRUGS (3)
  1. NICOTINE. [Suspect]
     Active Substance: NICOTINE
     Indication: PRODUCT USED FOR UNKNOWN INDICATION
     Dosage: UNK
     Route: 065
  2. NYQUIL HOT THERAPY [Concomitant]
     Active Substance: ACETAMINOPHEN\DEXTROMETHORPHAN\DOXYLAMINE SUCCINATE\PSEUDOEPHEDRINE HYDROCHLORIDE
     Indication: PRODUCT USED FOR UNKNOWN INDICATION
     Dosage: UNK
     Route: 065
  3. SERTRALINE [Suspect]
     Active Substance: SERTRALINE HYDROCHLORIDE
     Indication: PRODUCT USED FOR UNKNOWN INDICATION
     Dosage: UNK (SHE TOOK SERTRALINE AT NIGHT AND ACCIDENTALLY AGAIN IN THE MORNING (DUE TO FORGETFULNESS))
     Route: 065

REACTIONS (4)
  - Fall [Unknown]
  - Generalised tonic-clonic seizure [Recovered/Resolved]
  - Accidental exposure to product [Unknown]
  - Serotonin syndrome [Unknown]

NARRATIVE: CASE EVENT DATE: 2019
